FAERS Safety Report 6475539-8 (Version None)
Quarter: 2009Q4

REPORT INFORMATION
  Report Type: 
  Country: None (occurrence: None)
  Receive Date: 20091204
  Receipt Date: 20091124
  Transmission Date: 20100525
  Serious: Yes (Hospitalization, Other)
  Sender: FDA-Public Use
  Company Number: BR-ABBOTT-09P-020-0605139-00

PATIENT
  Sex: Female
  Weight: 80 kg

DRUGS (4)
  1. HUMIRA [Suspect]
     Indication: RHEUMATOID ARTHRITIS
     Route: 058
     Dates: end: 20090215
  2. HYDROXYCHLOROQUINE SULFATE [Concomitant]
     Indication: RHEUMATOID ARTHRITIS
     Route: 048
  3. RANITIDINE [Concomitant]
     Indication: GASTRIC DISORDER
     Route: 048
  4. PARACETAMOL [Concomitant]
     Indication: PAIN
     Route: 048

REACTIONS (5)
  - ARTHRALGIA [None]
  - BONE DISORDER [None]
  - DRUG INEFFECTIVE [None]
  - JOINT SWELLING [None]
  - NODULE [None]
